FAERS Safety Report 6029890-6 (Version None)
Quarter: 2008Q4

REPORT INFORMATION
  Report Type: 
  Country: None (occurrence: None)
  Receive Date: 20081222
  Receipt Date: 20080930
  Transmission Date: 20090506
  Serious: No
  Sender: FDA-Public Use
  Company Number: US-WYE-H06183708

PATIENT
  Age: 55 Year
  Sex: Female
  Weight: 90.8 kg

DRUGS (2)
  1. PRISTIQ [Suspect]
     Indication: FIBROMYALGIA
     Dosage: 50 MG 1X PER 1DAY, ORAL
     Route: 048
     Dates: start: 20080909, end: 20080929
  2. PRISTIQ [Suspect]
     Indication: MIGRAINE
     Dosage: 50 MG 1X PER 1DAY, ORAL
     Route: 048
     Dates: start: 20080909, end: 20080929

REACTIONS (4)
  - BACK PAIN [None]
  - MUSCLE SPASMS [None]
  - MUSCLE TIGHTNESS [None]
  - PERSONALITY CHANGE [None]
